FAERS Safety Report 6331052-X (Version None)
Quarter: 2009Q3

REPORT INFORMATION
  Report Type: 
  Country: None (occurrence: None)
  Receive Date: 20090827
  Receipt Date: 20090821
  Transmission Date: 20100115
  Serious: Yes (Death)
  Sender: FDA-Public Use
  Company Number: A0804604A

PATIENT
  Sex: Male
  Weight: 74 kg

DRUGS (11)
  1. SERETIDE [Suspect]
     Dosage: 1PUFF TWICE PER DAY
     Route: 055
     Dates: start: 20090723, end: 20090818
  2. ATROVENT [Concomitant]
     Dosage: 8DROP SEE DOSAGE TEXT
     Dates: start: 20090801
  3. MAREVAN [Concomitant]
     Dosage: 5MG PER DAY
     Dates: start: 20081101, end: 20090818
  4. ENALAPRIL MALEATE [Concomitant]
     Dosage: 20MG TWICE PER DAY
     Route: 048
     Dates: start: 20090401, end: 20090818
  5. CARVEDILOL [Concomitant]
     Dosage: 12.5MG TWICE PER DAY
     Route: 048
  6. LASIX [Concomitant]
     Dosage: .5TAB PER DAY
     Route: 048
  7. BUFFERIN [Concomitant]
     Dosage: 80MG PER DAY
  8. ALDACTONE [Concomitant]
     Dosage: 25MG PER DAY
     Route: 048
  9. SYNTHROID [Concomitant]
     Dosage: 75MG PER DAY
  10. SIMVASTATIN [Concomitant]
     Dosage: 20MG PER DAY
     Route: 048
  11. LEVOFLOXACIN [Concomitant]
     Dosage: 1000MG PER DAY
     Route: 048

REACTIONS (4)
  - BRONCHOPNEUMONIA [None]
  - CARDIAC FAILURE [None]
  - CHRONIC OBSTRUCTIVE PULMONARY DISEASE [None]
  - HAEMOPTYSIS [None]
